FAERS Safety Report 9890297 (Version 2)
Quarter: 2014Q1

REPORT INFORMATION
  Report Type: Report from Study
  Country: CO (occurrence: CO)
  Receive Date: 20140212
  Receipt Date: 20140225
  Transmission Date: 20141002
  Serious: Yes (Hospitalization, Other)
  Sender: FDA-Public Use
  Company Number: CO-BRISTOL-MYERS SQUIBB COMPANY-20145850

PATIENT
  Age: 56 Year
  Sex: Female

DRUGS (1)
  1. ORENCIA FOR INJ 250 MG/VIAL [Suspect]
     Dosage: 1DF:3 VIALS
     Route: 042

REACTIONS (4)
  - Headache [Unknown]
  - Chest discomfort [Unknown]
  - Respiratory failure [Recovered/Resolved]
  - Pain [Recovered/Resolved]
